FAERS Safety Report 4905782-8 (Version None)
Quarter: 2006Q1

REPORT INFORMATION
  Report Type: 
  Country: None (occurrence: None)
  Receive Date: 20060208
  Receipt Date: 20060106
  Transmission Date: 20060701
  Serious: Yes (Hospitalization, Disabling)
  Sender: FDA-Public Use
  Company Number: US-MERCK-0601USA00845

PATIENT
  Age: 46 Year
  Sex: Female
  Weight: 78 kg

DRUGS (10)
  1. VIOXX [Suspect]
     Indication: ARTHRITIS
     Route: 048
     Dates: start: 20040201, end: 20040901
  2. CRESTOR [Concomitant]
     Route: 065
  3. TOPROL-XL [Concomitant]
     Route: 065
  4. NEXIUM [Concomitant]
     Route: 065
  5. K-DUR 10 [Concomitant]
     Route: 065
  6. FUROSEMIDE [Concomitant]
     Route: 065
  7. DARVOCET-N 50 [Concomitant]
     Route: 065
  8. LORTAB [Concomitant]
     Route: 065
  9. TYLOX [Concomitant]
     Route: 065
  10. PHENERGAN SYRUP [Concomitant]
     Route: 065

REACTIONS (6)
  - CHEST PAIN [None]
  - DEPRESSION [None]
  - EMOTIONAL DISORDER [None]
  - MENTAL DISORDER [None]
  - MYOCARDIAL INFARCTION [None]
  - SKIN LACERATION [None]
